FAERS Safety Report 16700318 (Version 2)
Quarter: 2019Q3

REPORT INFORMATION
  Report Type: Spontaneous
  Country: FR (occurrence: FR)
  Receive Date: 20190814
  Receipt Date: 20190829
  Transmission Date: 20191004
  Serious: Yes (Hospitalization, Other)
  Sender: FDA-Public Use
  Company Number: FR-AMGEN-FRASP2019126819

PATIENT
  Age: 70 Year
  Sex: Male
  Weight: 68 kg

DRUGS (1)
  1. NPLATE [Suspect]
     Active Substance: ROMIPLOSTIM
     Indication: IMMUNE THROMBOCYTOPENIC PURPURA
     Dosage: 3 MICROGRAM/KILOGRAM
     Route: 058
     Dates: start: 20190801

REACTIONS (2)
  - Peripheral nerve paresis [Not Recovered/Not Resolved]
  - Peripheral paralysis [Not Recovered/Not Resolved]

NARRATIVE: CASE EVENT DATE: 20190802
